FAERS Safety Report 7705369-8 (Version None)
Quarter: 2011Q3

REPORT INFORMATION
  Report Type: 
  Country: None (occurrence: None)
  Receive Date: 20110824
  Receipt Date: 20110811
  Transmission Date: 20111222
  Serious: Yes (Other)
  Sender: FDA-Public Use
  Company Number: NL-UCBSA-039104

PATIENT
  Age: 44 Year
  Sex: Female

DRUGS (2)
  1. CIMZIA [Suspect]
     Indication: RHEUMATOID ARTHRITIS
     Dosage: WEEK 0, 2 AND 4
     Route: 058
     Dates: start: 20110510, end: 20110101
  2. CIMZIA [Suspect]
     Route: 058
     Dates: start: 20110101, end: 20110810

REACTIONS (2)
  - SUICIDAL IDEATION [None]
  - DEPRESSION [None]
